FAERS Safety Report 15978859 (Version 1)
Quarter: 2019Q1

REPORT INFORMATION
  Report Type: Spontaneous
  Country: MX (occurrence: MX)
  Receive Date: 20190219
  Receipt Date: 20190219
  Transmission Date: 20190418
  Serious: No
  Sender: FDA-Public Use
  Company Number: MX-ROCHE-2268527

PATIENT
  Age: 27 Year
  Sex: Female

DRUGS (1)
  1. OCREVUS [Suspect]
     Active Substance: OCRELIZUMAB
     Indication: MULTIPLE SCLEROSIS
     Route: 065
     Dates: start: 201811

REACTIONS (2)
  - Influenza [Recovered/Resolved]
  - Immunodeficiency [Unknown]

NARRATIVE: CASE EVENT DATE: 20190105
